FAERS Safety Report 17761847 (Version 2)
Quarter: 2020Q2

REPORT INFORMATION
  Report Type: Spontaneous
  Country: AU (occurrence: AU)
  Receive Date: 20200508
  Receipt Date: 20200519
  Transmission Date: 20200714
  Serious: Yes (Hospitalization, Other)
  Sender: FDA-Public Use
  Company Number: AU-MYLANLABS-2020M1046538

PATIENT
  Age: 41 Year
  Sex: Female

DRUGS (5)
  1. CLOZAPINE. [Suspect]
     Active Substance: CLOZAPINE
     Indication: SCHIZOAFFECTIVE DISORDER
     Dosage: 175 MILLIGRAM
     Route: 065
  2. DULOXETINE. [Suspect]
     Active Substance: DULOXETINE
     Indication: SCHIZOAFFECTIVE DISORDER
     Dosage: 90 MILLIGRAM
     Route: 065
  3. VALPROATE [Concomitant]
     Active Substance: VALPROIC ACID
     Indication: SCHIZOAFFECTIVE DISORDER
     Dosage: 1500 MILLIGRAM
     Route: 065
  4. ZUCLOPENTHIXOL DECANOATE [Suspect]
     Active Substance: ZUCLOPENTHIXOL DECANOATE
     Indication: SCHIZOAFFECTIVE DISORDER
     Dosage: FORTNIGHTLY
     Route: 065
  5. ZUCLOPENTHIXOL DECANOATE [Suspect]
     Active Substance: ZUCLOPENTHIXOL DECANOATE
     Dosage: DEPOT ADMINISTERED ON DAY 17 IN ICU
     Route: 065

REACTIONS (2)
  - Withdrawal catatonia [Recovered/Resolved]
  - Malignant catatonia [Recovered/Resolved]
